FAERS Safety Report 21245266 (Version 5)
Quarter: 2024Q2

REPORT INFORMATION
  Report Type: Spontaneous
  Country: PK (occurrence: PK)
  Receive Date: 20220823
  Receipt Date: 20240508
  Transmission Date: 20240716
  Serious: Yes (Other)
  Sender: FDA-Public Use
  Company Number: PK-PFIZER INC-2019430430

PATIENT
  Age: 46 Year
  Sex: Male

DRUGS (13)
  1. ENBREL [Suspect]
     Active Substance: BENZYL ALCOHOL\ETANERCEPT
     Indication: Ankylosing spondylitis
     Dosage: 50 MG, MONTHLY
     Route: 058
  2. ENBREL [Suspect]
     Active Substance: BENZYL ALCOHOL\ETANERCEPT
     Dosage: 50MG EVERY 2 WEEKS
     Route: 058
     Dates: start: 20191003
  3. ENBREL [Suspect]
     Active Substance: BENZYL ALCOHOL\ETANERCEPT
     Dosage: 50MG EVERY 3 WEEKS
     Route: 058
  4. ENBREL [Suspect]
     Active Substance: BENZYL ALCOHOL\ETANERCEPT
     Dosage: 50MG EVERY 2 WEEKS
     Route: 058
  5. ENBREL [Suspect]
     Active Substance: BENZYL ALCOHOL\ETANERCEPT
     Dosage: 50 MG, WEEKLY
     Route: 058
     Dates: start: 20240129
  6. FOLIC ACID [Concomitant]
     Active Substance: FOLIC ACID
     Indication: Product used for unknown indication
     Dosage: UNK, EVERY DAY BUT NOT ON FRIDAY
     Route: 065
  7. METHOTREXATE [Concomitant]
     Active Substance: METHOTREXATE
     Indication: Product used for unknown indication
     Dosage: 10 MG, WEEKLY, TAKE ONLY EVERY FRIDAY
  8. PANADOL [Concomitant]
     Active Substance: ACETAMINOPHEN
     Indication: Pain
     Dosage: UNK UNK, 3X/DAY2+2+2 IN MORNING, AFTERNOON AND EVENING
     Route: 065
  9. ETORICOXIB [Concomitant]
     Active Substance: ETORICOXIB
     Indication: Pain
     Dosage: 120 MG, 1X/DAY,OCCASIONARY, AFTER MEAL
     Route: 065
  10. ETORICOXIB [Concomitant]
     Active Substance: ETORICOXIB
     Dosage: 90 MG, 1X/DAY,OCCASIONARY, AFTER MEAL
     Route: 065
  11. SUNVITE [Concomitant]
     Indication: Back pain
     Dosage: UNK, ADD TO MILK AND DRINK ONE EVERY WEEK
  12. SUNVITE [Concomitant]
     Dosage: UNK, 4 TIMES THEN AFTER EVERY 4 MONTHS DRINK 1 INJ AGAIN
     Route: 065
  13. Dolgina [Concomitant]
     Indication: Abdominal pain upper
     Dosage: 60 MG, 1 BEFORE BREAKFAST IF TAKING STRONG PAINKILLER
     Route: 065

REACTIONS (5)
  - Off label use [Unknown]
  - Ankylosing spondylitis [Unknown]
  - Disease progression [Unknown]
  - Neuropathy peripheral [Unknown]
  - Blood pressure increased [Unknown]

NARRATIVE: CASE EVENT DATE: 20220723
